FAERS Safety Report 5812620-8 (Version None)
Quarter: 2008Q3

REPORT INFORMATION
  Report Type: 
  Country: None (occurrence: None)
  Receive Date: 20080714
  Receipt Date: 20080714
  Transmission Date: 20090109
  Serious: No
  Sender: FDA-Public Use
  Company Number: None

PATIENT
  Age: 74 Year
  Sex: Female

DRUGS (1)
  1. ACTONEL [Suspect]
     Indication: BONE DISORDER
     Dosage: 1 TABLET WEEKLY PO
     Route: 048
     Dates: start: 20050212, end: 20070113

REACTIONS (2)
  - NERVE INJURY [None]
  - OROPHARYNGEAL PAIN [None]
